FAERS Safety Report 14224925 (Version 2)
Quarter: 2017Q4

REPORT INFORMATION
  Report Type: Spontaneous
  Country: US (occurrence: US)
  Receive Date: 20171127
  Receipt Date: 20171216
  Transmission Date: 20180321
  Serious: Yes (Other)
  Sender: FDA-Public Use
  Company Number: US-009507513-1711USA009083

PATIENT
  Age: 66 Year
  Sex: Male

DRUGS (2)
  1. SINEMET [Suspect]
     Active Substance: CARBIDOPA\LEVODOPA
     Indication: PARKINSON^S DISEASE
     Route: 048
  2. JAKAFI [Interacting]
     Active Substance: RUXOLITINIB
     Indication: POLYCYTHAEMIA VERA
     Dosage: 10 MG, QD
     Route: 048
     Dates: start: 20160926

REACTIONS (4)
  - Tremor [Unknown]
  - Drug interaction [Unknown]
  - Muscle tightness [Unknown]
  - Drug ineffective [Unknown]

NARRATIVE: CASE EVENT DATE: 201709
